FAERS Safety Report 11871330 (Version 1)
Quarter: 2015Q4

REPORT INFORMATION
  Report Type: Spontaneous
  Country: GB (occurrence: GB)
  Receive Date: 20151228
  Receipt Date: 20151228
  Transmission Date: 20160305
  Serious: Yes (Hospitalization)
  Sender: FDA-Public Use
  Company Number: GB-TEVA-618728ACC

PATIENT
  Age: 85 Year

DRUGS (11)
  1. PARACETAMOL [Concomitant]
     Active Substance: ACETAMINOPHEN
     Dosage: 4 GRAM DAILY;
  2. LANSOPRAZOLE. [Suspect]
     Active Substance: LANSOPRAZOLE
     Dosage: 30 MILLIGRAM DAILY; 30 MG, IN THE MORNING
  3. SIMVASTATIN. [Concomitant]
     Active Substance: SIMVASTATIN
     Dosage: 20 MILLIGRAM DAILY; 20 MG, AT NIGHT
  4. BISOPROLOL [Concomitant]
     Active Substance: BISOPROLOL
     Dosage: 1.25 MILLIGRAM DAILY;
  5. DOCUSATE [Concomitant]
     Active Substance: DOCUSATE
     Dosage: 400 MILLIGRAM DAILY;
  6. MICARDISPLUS [Suspect]
     Active Substance: HYDROCHLOROTHIAZIDE\TELMISARTAN
     Dosage: 12.5 MILLIGRAM DAILY; 12.5 MG, TELMISARTAN 80MG/HYDROCHLORTHIAZIDE 12.5
  7. CLOPIDOGREL [Concomitant]
     Active Substance: CLOPIDOGREL BISULFATE
     Dosage: 75 MILLIGRAM DAILY;
  8. HYPROMELLOSE [Concomitant]
     Active Substance: HYPROMELLOSES
     Dosage: 0.3% EYE DROPS 1 -2 DROPS 4 TIMES A DAY
     Route: 047
  9. ISOSORBIDE MONONITRATE. [Concomitant]
     Active Substance: ISOSORBIDE MONONITRATE
     Dosage: 40 MILLIGRAM DAILY; 40 MG, MODIFIED RELEASE, IN THE MORNING
  10. MEBEVERINE [Concomitant]
     Active Substance: MEBEVERINE
     Dosage: 400 MILLIGRAM DAILY; 400 MG, MODIFIED RELEASE
  11. PEPPERMINT OIL [Concomitant]
     Active Substance: PEPPERMINT OIL
     Dosage: .2 ML DAILY; 0.2 ML, MODIFIED RELEASE

REACTIONS (3)
  - Confusional state [Unknown]
  - Dysarthria [Unknown]
  - Hyponatraemia [Recovering/Resolving]
